FAERS Safety Report 26142114 (Version 1)
Quarter: 2025Q4

REPORT INFORMATION
  Report Type: Spontaneous
  Country: US (occurrence: None)
  Receive Date: 20251210
  Receipt Date: 20251210
  Transmission Date: 20260118
  Serious: Yes (Other)
  Sender: FDA-CTU
  Company Number: None

PATIENT
  Age: 55 Year
  Sex: Female
  Weight: 82.35 kg

DRUGS (10)
  1. DENOSUMAB [Suspect]
     Active Substance: DENOSUMAB
     Indication: Osteoporosis
     Dosage: OTHER FREQUENCY : TWICE YEARLY;
     Route: 058
     Dates: start: 20250818, end: 20251114
  2. HCTZ 25 mg [Concomitant]
     Dosage: FREQUENCY : DAILY;
  3. LISINOPRIL [Concomitant]
     Active Substance: LISINOPRIL
     Dosage: FREQUENCY : DAILY;
  4. OMEPRAZOLE [Concomitant]
     Active Substance: OMEPRAZOLE
     Dosage: FREQUENCY : DAILY;
  5. LEVOTHYROXINE [Concomitant]
     Active Substance: LEVOTHYROXINE
     Dosage: FREQUENCY : DAILY;
  6. MOUNJARO [Concomitant]
     Active Substance: TIRZEPATIDE
     Dosage: FREQUENCY : WEEKLY;
  7. ATORVASTATIN [Concomitant]
     Active Substance: ATORVASTATIN
     Dosage: FREQUENCY : DAILY;
  8. FLUOXETINE [Concomitant]
     Active Substance: FLUOXETINE HYDROCHLORIDE
     Dosage: FREQUENCY : DAILY;
  9. Aromasin 25 mg [Concomitant]
     Dosage: FREQUENCY : DAILY;
  10. MVI Ibuprofen [Concomitant]

REACTIONS (1)
  - Osteonecrosis of jaw [None]

NARRATIVE: CASE EVENT DATE: 20251114
